FAERS Safety Report 5032321-6 (Version None)
Quarter: 2006Q2

REPORT INFORMATION
  Report Type: 
  Country: None (occurrence: None)
  Receive Date: 20060620
  Receipt Date: 20060620
  Transmission Date: 20061013
  Serious: Yes (Death)
  Sender: FDA-Public Use
  Company Number: None

PATIENT
  Sex: Male
  Weight: 71.1 kg

DRUGS (2)
  1. HEPARIN [Suspect]
     Indication: PROPHYLAXIS
     Dosage: SQ
     Route: 058
  2. BACTRIM [Suspect]
     Indication: INFECTION
     Dosage: PO
     Route: 048

REACTIONS (7)
  - HAEMORRHAGE [None]
  - INCREASED UPPER AIRWAY SECRETION [None]
  - PETECHIAE [None]
  - PLATELET COUNT DECREASED [None]
  - RESPIRATORY DISTRESS [None]
  - THERAPY NON-RESPONDER [None]
  - THROMBOCYTOPENIA [None]
